FAERS Safety Report 16956470 (Version 1)
Quarter: 2019Q4

REPORT INFORMATION
  Report Type: Report from Study
  Country: CA (occurrence: CA)
  Receive Date: 20191024
  Receipt Date: 20191024
  Transmission Date: 20200122
  Serious: Yes (Other)
  Sender: FDA-Public Use
  Company Number: CA-JNJFOC-20191017729

PATIENT
  Age: 60 Year
  Sex: Male
  Weight: 90.6 kg

DRUGS (1)
  1. REMICADE [Suspect]
     Active Substance: INFLIXIMAB
     Indication: CROHN^S DISEASE
     Route: 042

REACTIONS (2)
  - Skin cancer [Recovering/Resolving]
  - Skin infection [Unknown]

NARRATIVE: CASE EVENT DATE: 20190911
